FAERS Safety Report 4867196-9 (Version None)
Quarter: 2005Q4

REPORT INFORMATION
  Report Type: 
  Country: None (occurrence: None)
  Receive Date: 20051222
  Receipt Date: 20051213
  Transmission Date: 20060501
  Serious: Yes (Death)
  Sender: FDA-Public Use
  Company Number: DSA_70866_2005

PATIENT
  Sex: Female

DRUGS (1)
  1. DARVON [Suspect]
     Dosage: DF

REACTIONS (1)
  - ACCIDENTAL OVERDOSE [None]
